FAERS Safety Report 4306868-1 (Version None)
Quarter: 2004Q1

REPORT INFORMATION
  Report Type: 
  Country: None (occurrence: None)
  Receive Date: 20040227
  Receipt Date: 19991018
  Transmission Date: 20041129
  Serious: Yes (Life-Threatening, Hospitalization)
  Sender: FDA-Public Use
  Company Number: FR-GLAXOSMITHKLINE-B0072355A

PATIENT
  Age: 37 Year
  Sex: Female

DRUGS (5)
  1. TRACRIUM [Suspect]
     Indication: THYROID NEOPLASM
     Dosage: 35MG PER DAY
     Route: 042
     Dates: start: 19990629, end: 19990629
  2. SUXAMETHONIUM IODIDE [Suspect]
     Indication: THYROID NEOPLASM
     Dosage: 60MG PER DAY
     Route: 042
     Dates: start: 19990629, end: 19990629
  3. PROPOFOL [Suspect]
     Indication: THYROID NEOPLASM
     Dosage: 80MG PER DAY
     Route: 042
     Dates: start: 19990629, end: 19990629
  4. ATROPINE [Concomitant]
     Dosage: .5UNIT PER DAY
     Route: 030
     Dates: start: 19990629, end: 19990629
  5. FLUNITRAZEPAM [Concomitant]
     Dosage: 1MG PER DAY
     Route: 030
     Dates: start: 19990629, end: 19990629

REACTIONS (6)
  - ANAPHYLACTIC SHOCK [None]
  - CARDIAC FAILURE [None]
  - COMA [None]
  - PILOERECTION [None]
  - SINUS BRADYCARDIA [None]
  - SKIN DISCOLOURATION [None]
